FAERS Safety Report 18417742 (Version 1)
Quarter: 2020Q4

REPORT INFORMATION
  Report Type: Report from Study
  Country: US (occurrence: US)
  Receive Date: 20201022
  Receipt Date: 20201022
  Transmission Date: 20210114
  Serious: Yes (Hospitalization)
  Sender: FDA-Public Use
  Company Number: US-EXELIXIS-CABO-20032506

PATIENT
  Age: 67 Year
  Sex: Male

DRUGS (2)
  1. CABOMETYX [Suspect]
     Active Substance: CABOZANTINIB S-MALATE
     Indication: RENAL CANCER
     Dosage: 40 MG, QD
     Dates: start: 20200810, end: 20200819
  2. CABOMETYX [Suspect]
     Active Substance: CABOZANTINIB S-MALATE
     Dosage: 40 MG, QD
     Dates: start: 20200826, end: 20201009

REACTIONS (17)
  - Anxiety [Not Recovered/Not Resolved]
  - Asthenia [Not Recovered/Not Resolved]
  - Diarrhoea [Unknown]
  - Vomiting [Recovered/Resolved]
  - Nausea [Recovered/Resolved]
  - Blood pressure fluctuation [Recovering/Resolving]
  - Blood glucose decreased [Unknown]
  - Dyspnoea exertional [Not Recovered/Not Resolved]
  - Gastrooesophageal reflux disease [Unknown]
  - Peripheral swelling [Not Recovered/Not Resolved]
  - Dysgeusia [Not Recovered/Not Resolved]
  - Headache [Unknown]
  - Fatigue [Not Recovered/Not Resolved]
  - Cellulitis [Recovering/Resolving]
  - Chest pain [Recovered/Resolved]
  - Insomnia [Not Recovered/Not Resolved]
  - Paraesthesia [Not Recovered/Not Resolved]

NARRATIVE: CASE EVENT DATE: 20200913
